FAERS Safety Report 10871061 (Version 1)
Quarter: 2015Q1

REPORT INFORMATION
  Report Type: Spontaneous
  Country: US (occurrence: US)
  Receive Date: 20150226
  Receipt Date: 20150226
  Transmission Date: 20150721
  Serious: Yes (Death)
  Sender: FDA-Public Use
  Company Number: US-BANPHARM-20153565

PATIENT
  Age: 56 Year
  Sex: Male

DRUGS (4)
  1. LEVETIRACETAM. [Concomitant]
     Active Substance: LEVETIRACETAM
  2. PHENOBARBITAL. [Concomitant]
     Active Substance: PHENOBARBITAL
  3. PHENYTOIN. [Concomitant]
     Active Substance: PHENYTOIN
  4. VALPROIC ACID UNKNOWN PRODUCT [Suspect]
     Active Substance: VALPROIC ACID
     Route: 048

REACTIONS (3)
  - Exposure via ingestion [None]
  - Completed suicide [Fatal]
  - Death [Fatal]
